FAERS Safety Report 22265122 (Version 1)
Quarter: 2023Q2

REPORT INFORMATION
  Report Type: Spontaneous
  Country: US (occurrence: US)
  Receive Date: 20230428
  Receipt Date: 20230428
  Transmission Date: 20230722
  Serious: No
  Sender: FDA-Public Use
  Company Number: US-ViiV Healthcare Limited-94839

PATIENT
  Sex: Male

DRUGS (2)
  1. TRIUMEQ [Suspect]
     Active Substance: ABACAVIR SULFATE\DOLUTEGRAVIR SODIUM\LAMIVUDINE
     Indication: Product used for unknown indication
     Dosage: UNK, QD, 600/50/300 MG
     Route: 048
     Dates: start: 202011, end: 20230417
  2. OVER THE COUNTER MEDICATION (UNKNOWN) [Concomitant]
     Indication: Irritable bowel syndrome
     Dosage: UNK

REACTIONS (1)
  - Weight increased [Unknown]
